FAERS Safety Report 18050184 (Version 1)
Quarter: 2020Q3

REPORT INFORMATION
  Report Type: Spontaneous
  Country: GB (occurrence: GB)
  Receive Date: 20200721
  Receipt Date: 20200721
  Transmission Date: 20201103
  Serious: Yes (Hospitalization)
  Sender: FDA-Public Use
  Company Number: GB-PFIZER INC-2020274314

PATIENT
  Age: 73 Year
  Sex: Female

DRUGS (6)
  1. LANSOPRAZOLE. [Concomitant]
     Active Substance: LANSOPRAZOLE
     Dosage: UNK
  2. DALTEPARIN SODIUM [Concomitant]
     Active Substance: DALTEPARIN SODIUM
     Dosage: UNK
  3. PHENYTOIN SODIUM. [Suspect]
     Active Substance: PHENYTOIN SODIUM
     Indication: GLIOMA
     Dosage: 100 MG
     Route: 042
     Dates: start: 20200625, end: 20200625
  4. CO?AMILOZIDE [Concomitant]
     Active Substance: AMILORIDE HYDROCHLORIDE\HYDROCHLOROTHIAZIDE
     Dosage: UNK
  5. AMINOPHYLLINE HYDRATE [Concomitant]
     Active Substance: AMINOPHYLLINE
     Dosage: UNK
  6. LEVETIRACETAM ACCORD [Concomitant]
     Active Substance: LEVETIRACETAM
     Dosage: UNK

REACTIONS (1)
  - Purple glove syndrome [Not Recovered/Not Resolved]

NARRATIVE: CASE EVENT DATE: 20200625
